FAERS Safety Report 16660743 (Version 1)
Quarter: 2019Q3

REPORT INFORMATION
  Report Type: Spontaneous
  Country: AU (occurrence: AU)
  Receive Date: 20190802
  Receipt Date: 20190802
  Transmission Date: 20191004
  Serious: Yes (Other)
  Sender: FDA-Public Use
  Company Number: AU-SCIEGEN PHARMACEUTICALS INC-2019SCILIT00228

PATIENT
  Age: 82 Year
  Sex: Male

DRUGS (4)
  1. SIBERIAN GINSENG AND SILYMARIN [DIETARY SUPPLEMENT\HERBALS\MILK THISTLE] [Interacting]
     Active Substance: DIETARY SUPPLEMENT\HERBALS\MILK THISTLE
  2. ATENOLOL. [Concomitant]
     Active Substance: ATENOLOL
  3. ASPIRIN. [Concomitant]
     Active Substance: ASPIRIN
  4. ATORVASTATIN CALCIUM. [Suspect]
     Active Substance: ATORVASTATIN CALCIUM

REACTIONS (2)
  - Drug-induced liver injury [Recovered/Resolved]
  - Drug interaction [Recovered/Resolved]
